FAERS Safety Report 25448532 (Version 1)
Quarter: 2025Q2

REPORT INFORMATION
  Report Type: Other
  Country: CA (occurrence: CA)
  Receive Date: 20250618
  Receipt Date: 20250618
  Transmission Date: 20250717
  Serious: Yes (Other)
  Sender: CELLTRION
  Company Number: CA-CELLTRION INC.-2025CA018604

PATIENT

DRUGS (1)
  1. RITUXIMAB [Suspect]
     Active Substance: RITUXIMAB
     Indication: Rosai-Dorfman syndrome
     Route: 065

REACTIONS (3)
  - Rosai-Dorfman syndrome [Unknown]
  - Off label use [Unknown]
  - Intentional product use issue [Unknown]
